FAERS Safety Report 4627934-7 (Version None)
Quarter: 2005Q2

REPORT INFORMATION
  Report Type: 
  Country: None (occurrence: None)
  Receive Date: 20050401
  Receipt Date: 20050318
  Transmission Date: 20051028
  Serious: No
  Sender: FDA-Public Use
  Company Number: 05H-087-0293877-00

PATIENT
  Age: 13 Year
  Sex: Male

DRUGS (6)
  1. PENTAZOCINE LACTATE [Suspect]
     Indication: ANAESTHESIA
     Dosage: 15 MG, DAY, INTRAVENOUS; 10:00
     Route: 042
     Dates: start: 20050125, end: 20050125
  2. MIDAZOLAM HYDROCHLORIDE [Suspect]
     Indication: ANAESTHESIA
     Dosage: 5 MG, DAY, INTRAVENOUS; 10:00
     Route: 042
     Dates: start: 20050125, end: 20050125
  3. HYDROXYZINE HYDROCHLORIDE [Suspect]
     Indication: ANAESTHESIA
     Dosage: 25 MG, DAY, INTRAVENOUS; 10:00
     Route: 042
     Dates: start: 20050125, end: 20050125
  4. KETAMINE HCL [Suspect]
     Indication: ANAESTHESIA
     Dosage: 32 MG, DAY, INTRAVENOUS; 10:00
     Dates: start: 20050125, end: 20050125
  5. LIDOCAINE [Suspect]
     Indication: ANAESTHESIA
     Dosage: 50 MG, DAY, INTRAMUSCULAR; 10:00
     Route: 030
     Dates: start: 20040125, end: 20050125
  6. ATROPINE SULFATE [Suspect]
     Indication: ANAESTHESIA
     Dosage: 0.3 MG, DAY, INTRAVENOUS; 10:00
     Route: 042
     Dates: start: 20050125, end: 20050125

REACTIONS (3)
  - ANAESTHETIC COMPLICATION [None]
  - PHARYNGEAL OEDEMA [None]
  - RESPIRATORY FAILURE [None]
